FAERS Safety Report 6554023-7 (Version None)
Quarter: 2010Q1

REPORT INFORMATION
  Report Type: 
  Country: None (occurrence: None)
  Receive Date: 20100125
  Receipt Date: 20100125
  Transmission Date: 20100710
  Serious: Yes (Other)
  Sender: FDA-Public Use
  Company Number: None

PATIENT
  Age: 65 Year
  Sex: Female
  Weight: 61.4 kg

DRUGS (1)
  1. VENLAFAXINE [Suspect]

REACTIONS (3)
  - ECONOMIC PROBLEM [None]
  - FEAR [None]
  - MEDICATION RESIDUE [None]
